FAERS Safety Report 9299164 (Version 1)
Quarter: 2013Q2

REPORT INFORMATION
  Report Type: Spontaneous
  Country: US (occurrence: US)
  Receive Date: 20130520
  Receipt Date: 20130520
  Transmission Date: 20140414
  Serious: No
  Sender: FDA-Public Use
  Company Number: US-009507513-1305USA009543

PATIENT
  Age: 30 Year
  Sex: Female

DRUGS (7)
  1. SAPHRIS [Suspect]
     Indication: BIPOLAR DISORDER
     Dosage: 10 MG, BID
     Route: 060
  2. SAPHRIS [Suspect]
     Dosage: 10 MG, QD
     Route: 060
  3. SAPHRIS [Suspect]
     Dosage: 5 MG, QD
     Route: 060
     Dates: end: 20130429
  4. SAPHRIS [Suspect]
     Dosage: 10 MG, AT BED TIME
     Route: 060
     Dates: start: 20130507
  5. SAPHRIS [Suspect]
     Dosage: 5 MG, PRN
     Route: 060
     Dates: start: 20130507
  6. BENZTROPINE MESYLATE [Concomitant]
  7. ATIVAN [Concomitant]

REACTIONS (1)
  - Akathisia [Unknown]
